FAERS Safety Report 5042981-1 (Version None)
Quarter: 2006Q2

REPORT INFORMATION
  Report Type: 
  Country: None (occurrence: None)
  Receive Date: 20060601
  Receipt Date: 20060329
  Transmission Date: 20061013
  Serious: No
  Sender: FDA-Public Use
  Company Number: 2006PV011174

PATIENT
  Age: 63 Year
  Sex: Female
  Weight: 90.7194 kg

DRUGS (5)
  1. BYETTA [Suspect]
     Indication: DIABETES MELLITUS NON-INSULIN-DEPENDENT
     Dosage: 5 MCG;BID;SC
     Route: 058
     Dates: start: 20060201
  2. METFORMIN [Concomitant]
  3. TRICOR [Concomitant]
  4. VYTORIN [Concomitant]
  5. LISINOPRIL [Concomitant]

REACTIONS (11)
  - ANOREXIA [None]
  - BACK PAIN [None]
  - DIZZINESS [None]
  - ERUCTATION [None]
  - FEELING ABNORMAL [None]
  - FOOD CRAVING [None]
  - HEADACHE [None]
  - HYPOTENSION [None]
  - MALAISE [None]
  - NAUSEA [None]
  - PERIPHERAL COLDNESS [None]
